FAERS Safety Report 8524577-X (Version None)
Quarter: 2012Q2

REPORT INFORMATION
  Report Type: 
  Country: None (occurrence: None)
  Receive Date: 20120406
  Receipt Date: 20110727
  Transmission Date: 20120825
  Serious: Yes (Death)
  Sender: FDA-Public Use
  Company Number: US-2011-10530

PATIENT
  Age: 54 Year
  Sex: Female

DRUGS (7)
  1. SIROLIMUS (RAPAMUNE) [Concomitant]
  2. CIPROFLOXACIN (CIPROFLOXACIN LACTATE) [Concomitant]
  3. FLUCONAZOLE [Concomitant]
  4. ACYCLOVIR [Concomitant]
  5. BUSULFEX [Suspect]
     Indication: STEM CELL TRANSPLANT
     Dosage: 0.8 MG/KG, DAILY DOSE, INTRAVENOUS
     Route: 042
  6. CLOFARABINE [Suspect]
     Indication: STEM CELL TRANSPLANT
     Dosage: 30 MG/M2, DAILY DOSE, INTRAVENOUS
     Route: 042
  7. TACROLIMUS (TARCROLIMUS) [Concomitant]

REACTIONS (1)
  - CHRONIC GRAFT VERSUS HOST DISEASE [None]
